FAERS Safety Report 8003550-4 (Version None)
Quarter: 2011Q4

REPORT INFORMATION
  Report Type: 
  Country: None (occurrence: None)
  Receive Date: 20111222
  Receipt Date: 20111216
  Transmission Date: 20120403
  Serious: Yes (Death)
  Sender: FDA-Public Use
  Company Number: US-CELGENEUS-163-21660-11101435

PATIENT
  Sex: Female

DRUGS (1)
  1. ABRAXANE [Suspect]
     Dosage: VIALS
     Route: 041
     Dates: start: 20110712, end: 20110802

REACTIONS (1)
  - PANCREATIC CARCINOMA [None]
